FAERS Safety Report 25385456 (Version 1)
Quarter: 2025Q2

REPORT INFORMATION
  Report Type: Spontaneous
  Country: US (occurrence: None)
  Receive Date: 20250601
  Receipt Date: 20250601
  Transmission Date: 20250717
  Serious: Yes (Other)
  Sender: FDA-CTU
  Company Number: None

PATIENT
  Age: 72 Year
  Sex: Female
  Weight: 75.6 kg

DRUGS (3)
  1. ELIQUIS [Suspect]
     Active Substance: APIXABAN
     Dosage: OTHER QUANTITY : 1 TABLET(S);?FREQUENCY : EVERY 12 HOURS;?
     Route: 048
     Dates: start: 20250130, end: 20250601
  2. NM-6603 [Concomitant]
     Active Substance: NM-6603
  3. VITAMINS [Concomitant]
     Active Substance: VITAMINS

REACTIONS (8)
  - Arthralgia [None]
  - Appetite disorder [None]
  - Weight increased [None]
  - Alopecia [None]
  - Headache [None]
  - Pruritus [None]
  - Pruritus [None]
  - Skin haemorrhage [None]

NARRATIVE: CASE EVENT DATE: 20250526
